FAERS Safety Report 16543642 (Version 1)
Quarter: 2019Q3

REPORT INFORMATION
  Report Type: Spontaneous
  Country: US (occurrence: US)
  Receive Date: 20190709
  Receipt Date: 20190709
  Transmission Date: 20191004
  Serious: No
  Sender: FDA-Public Use
  Company Number: US-BAXTER-2019BAX013138

PATIENT

DRUGS (1)
  1. TISSEEL [Suspect]
     Active Substance: FIBRINOGEN HUMAN\THROMBIN HUMAN
     Indication: TISSUE SEALING
     Route: 065
     Dates: start: 20190206, end: 20190206

REACTIONS (4)
  - Papule [Recovering/Resolving]
  - Procedural site reaction [Not Recovered/Not Resolved]
  - Swelling [Recovering/Resolving]
  - Abscess neck [Unknown]

NARRATIVE: CASE EVENT DATE: 201902
